FAERS Safety Report 9188663 (Version 1)
Quarter: 2013Q1

REPORT INFORMATION
  Report Type: Spontaneous
  Country: US (occurrence: US)
  Receive Date: 20130325
  Receipt Date: 20130325
  Transmission Date: 20140127
  Serious: Yes (Hospitalization, Other)
  Sender: FDA-Public Use
  Company Number: US-ELI_LILLY_AND_COMPANY-US201303005793

PATIENT
  Age: 61 Year
  Sex: Male
  Weight: 138.32 kg

DRUGS (10)
  1. BYETTA [Suspect]
     Indication: TYPE 2 DIABETES MELLITUS
     Dosage: 5 UG, BID
     Route: 058
     Dates: start: 2011
  2. BYETTA [Suspect]
     Dosage: 10 UG, BID
     Route: 058
  3. LANTUS [Concomitant]
     Indication: TYPE 2 DIABETES MELLITUS
     Dosage: UNK UNK, PRN
  4. COREG [Concomitant]
     Indication: CARDIAC DISORDER
     Dosage: UNK
  5. ASPIRIN                                 /USA/ [Concomitant]
     Indication: CARDIAC DISORDER
     Dosage: 81 MG, QD
     Route: 048
  6. LISINOPRIL                              /USA/ [Concomitant]
     Indication: HYPERTENSION
     Dosage: 20 MG, BID
     Route: 048
     Dates: end: 201209
  7. LISINOPRIL                              /USA/ [Concomitant]
     Dosage: 10 MG, QD
     Route: 048
     Dates: start: 201209
  8. FUROSEMIDE [Concomitant]
     Indication: BLOOD PRESSURE INCREASED
     Dosage: 80 MG, QD
     Route: 048
     Dates: end: 201209
  9. FUROSEMIDE [Concomitant]
     Dosage: 20 MG, QD
     Route: 048
     Dates: start: 201209
  10. SPIRONOLACTONE [Concomitant]
     Indication: HYPERTENSION
     Dosage: UNK
     Dates: end: 201209

REACTIONS (11)
  - Bladder cancer [Not Recovered/Not Resolved]
  - Blood pressure decreased [Recovering/Resolving]
  - Renal impairment [Recovering/Resolving]
  - Weight decreased [Unknown]
  - Blood glucose increased [Not Recovered/Not Resolved]
  - Kidney infection [Unknown]
  - Dry mouth [Unknown]
  - Decreased appetite [Unknown]
  - Blood glucose decreased [Unknown]
  - Vomiting [Unknown]
  - Diarrhoea [Unknown]
